FAERS Safety Report 23553411 (Version 1)
Quarter: 2024Q1

REPORT INFORMATION
  Report Type: Report from Study
  Country: ZA (occurrence: ZA)
  Receive Date: 20240222
  Receipt Date: 20240222
  Transmission Date: 20240410
  Serious: Yes (Other)
  Sender: FDA-Public Use
  Company Number: ZA-SANDOZ-SDZ2024ZA017404

PATIENT
  Age: 75 Year
  Sex: Female

DRUGS (1)
  1. ERELZI [Suspect]
     Active Substance: ETANERCEPT-SZZS
     Indication: Rheumatoid arthritis
     Dosage: UNK
     Route: 058
     Dates: start: 20231101

REACTIONS (1)
  - Blood creatinine abnormal [Unknown]

NARRATIVE: CASE EVENT DATE: 20240220
